FAERS Safety Report 8851048 (Version 2)
Quarter: 2012Q4

REPORT INFORMATION
  Report Type: 
  Country: US (occurrence: US)
  Receive Date: 20121019
  Receipt Date: 20121024
  Transmission Date: 20130627
  Serious: Yes (Other)
  Sender: FDA-Public Use
  Company Number: US-PFIZER INC-2012259797

PATIENT

DRUGS (1)
  1. CHANTIX [Suspect]
     Dosage: UNK
     Dates: start: 201205, end: 2012

REACTIONS (5)
  - Dysphagia [Not Recovered/Not Resolved]
  - Dyspnoea [Unknown]
  - Speech disorder [Not Recovered/Not Resolved]
  - Dysphonia [Not Recovered/Not Resolved]
  - Impaired work ability [Not Recovered/Not Resolved]
